FAERS Safety Report 15339090 (Version 1)
Quarter: 2018Q3

REPORT INFORMATION
  Report Type: Spontaneous
  Country: US (occurrence: US)
  Receive Date: 20180831
  Receipt Date: 20180831
  Transmission Date: 20181010
  Serious: Yes (Other)
  Sender: FDA-Public Use
  Company Number: US-MALLINCKRODT-T201803618

PATIENT
  Age: 59 Year
  Sex: Female

DRUGS (1)
  1. HYDROCODONE/ACETAMINOPHEN [Suspect]
     Active Substance: ACETAMINOPHEN\HYDROCODONE
     Indication: PRODUCT USED FOR UNKNOWN INDICATION
     Dosage: 5/325 MG, EVERY 12 HOURS FOR ABOUT 2 WEEKS
     Route: 048

REACTIONS (4)
  - Cardiac stress test abnormal [Unknown]
  - Drug hypersensitivity [Unknown]
  - Chest pain [Unknown]
  - Pain in extremity [Unknown]
